FAERS Safety Report 5850446-X (Version None)
Quarter: 2008Q3

REPORT INFORMATION
  Report Type: 
  Country: None (occurrence: None)
  Receive Date: 20080818
  Receipt Date: 20080729
  Transmission Date: 20090109
  Serious: Yes (Hospitalization)
  Sender: FDA-Public Use
  Company Number: CIO08013070

PATIENT
  Age: 61 Year
  Sex: Male

DRUGS (3)
  1. CREST BAKING SODA WHITENING W/TARTAR PROTECTION, FRESH MINT FLAVOR(SOD [Suspect]
     Dosage: INTRAORAL
     Route: 048
     Dates: start: 20080708, end: 20080724
  2. ANTABUSE [Concomitant]
  3. ^MANY OTHERS^ [Concomitant]

REACTIONS (6)
  - CARDIAC ENZYMES INCREASED [None]
  - HYPERSENSITIVITY [None]
  - LIP SWELLING [None]
  - OEDEMA MOUTH [None]
  - SENSATION OF FOREIGN BODY [None]
  - SWOLLEN TONGUE [None]
